FAERS Safety Report 4915603-5 (Version None)
Quarter: 2006Q1

REPORT INFORMATION
  Report Type: 
  Country: None (occurrence: None)
  Receive Date: 20060217
  Receipt Date: 20051004
  Transmission Date: 20060701
  Serious: Yes (Hospitalization)
  Sender: FDA-Public Use
  Company Number: US-MERCK-0510USA03112

PATIENT
  Age: 59 Year
  Sex: Male
  Weight: 58 kg

DRUGS (10)
  1. VIOXX [Suspect]
     Indication: PAIN
     Route: 048
     Dates: start: 20000407, end: 20000510
  2. VIOXX [Suspect]
     Route: 048
     Dates: start: 20000511, end: 20031201
  3. VIOXX [Suspect]
     Indication: ARTHRITIS
     Route: 048
     Dates: start: 20000407, end: 20000510
  4. VIOXX [Suspect]
     Route: 048
     Dates: start: 20000511, end: 20031201
  5. ZYDONE [Concomitant]
     Route: 065
  6. ATROVENT [Concomitant]
     Route: 065
  7. VIAGRA [Concomitant]
     Route: 065
  8. COVERA-HS [Concomitant]
     Route: 065
  9. CLARITIN [Concomitant]
     Route: 065
  10. LORTAB [Concomitant]
     Route: 065

REACTIONS (14)
  - ALCOHOL USE [None]
  - ANAEMIA [None]
  - ANXIETY [None]
  - BRONCHITIS ACUTE [None]
  - CEREBROVASCULAR ACCIDENT [None]
  - DEPRESSION [None]
  - DRUG EFFECT DECREASED [None]
  - ESSENTIAL HYPERTENSION [None]
  - INSOMNIA [None]
  - INTERVERTEBRAL DISC DEGENERATION [None]
  - INTERVERTEBRAL DISC PROTRUSION [None]
  - NERVOUSNESS [None]
  - POLYNEUROPATHY [None]
  - TREATMENT NONCOMPLIANCE [None]
